FAERS Safety Report 19642668 (Version 1)
Quarter: 2021Q3

REPORT INFORMATION
  Report Type: Spontaneous
  Country: IT (occurrence: IT)
  Receive Date: 20210731
  Receipt Date: 20210731
  Transmission Date: 20211014
  Serious: Yes (Hospitalization)
  Sender: FDA-Public Use
  Company Number: IT-JNJFOC-20210749535

PATIENT
  Sex: Female

DRUGS (2)
  1. TRACLEER [Suspect]
     Active Substance: BOSENTAN
     Indication: SYSTEMIC SCLERODERMA
     Route: 048
     Dates: start: 2016
  2. GRANPIDAM [Suspect]
     Active Substance: SILDENAFIL CITRATE
     Indication: SYSTEMIC SCLERODERMA
     Route: 065
     Dates: start: 202011

REACTIONS (5)
  - Syncope [Unknown]
  - Dizziness [Unknown]
  - Muscular weakness [Unknown]
  - Diplopia [Unknown]
  - Impaired healing [Unknown]

NARRATIVE: CASE EVENT DATE: 20210628
